FAERS Safety Report 8500781-1 (Version None)
Quarter: 2012Q3

REPORT INFORMATION
  Report Type: 
  Country: None (occurrence: None)
  Receive Date: 20120710
  Receipt Date: 20120628
  Transmission Date: 20120928
  Serious: No
  Sender: FDA-Public Use
  Company Number: US-ASTRAZENECA-2012SE43887

PATIENT
  Age: 51 Year
  Sex: Female
  Weight: 53.5 kg

DRUGS (1)
  1. SYMBICORT [Suspect]
     Indication: ASTHMA
     Dosage: 160/4.52, BID
     Route: 055
     Dates: start: 20120601

REACTIONS (4)
  - OFF LABEL USE [None]
  - NERVOUSNESS [None]
  - FEELING JITTERY [None]
  - PSYCHOMOTOR HYPERACTIVITY [None]
